FAERS Safety Report 4280668-3 (Version None)
Quarter: 2004Q1

REPORT INFORMATION
  Report Type: 
  Country: None (occurrence: None)
  Receive Date: 20040127
  Receipt Date: 20040114
  Transmission Date: 20041129
  Serious: Yes (Hospitalization)
  Sender: FDA-Public Use
  Company Number: 04P-056-0247186-00

PATIENT
  Age: 28 Year
  Sex: Male
  Weight: 68 kg

DRUGS (4)
  1. TRICOR [Suspect]
     Dosage: 1 IN 1 D, ORAL
     Route: 048
     Dates: end: 20031020
  2. DIDANOSINE [Concomitant]
  3. KALETRA [Concomitant]
  4. VIREAD [Concomitant]

REACTIONS (2)
  - HYPERHIDROSIS [None]
  - RENAL FAILURE [None]
